FAERS Safety Report 12684788 (Version 2)
Quarter: 2016Q3

REPORT INFORMATION
  Report Type: Spontaneous
  Country: US (occurrence: US)
  Receive Date: 20160825
  Receipt Date: 20160923
  Transmission Date: 20161109
  Serious: No
  Sender: FDA-Public Use
  Company Number: US-GLAXOSMITHKLINE-US2016122142

PATIENT
  Age: 30 Year
  Sex: Female

DRUGS (1)
  1. EXCEDRIN MIGRAINE [Suspect]
     Active Substance: ACETAMINOPHEN\ASPIRIN\CAFFEINE
     Indication: MIGRAINE
     Dosage: UNK,2 A DAY
     Route: 048
     Dates: start: 20160812, end: 20160819

REACTIONS (3)
  - Expired product administered [Unknown]
  - Product quality issue [Unknown]
  - Tongue discomfort [Recovered/Resolved]

NARRATIVE: CASE EVENT DATE: 20160812
